FAERS Safety Report 9968608 (Version 1)
Quarter: 2014Q1

REPORT INFORMATION
  Report Type: Spontaneous
  Country: US (occurrence: US)
  Receive Date: 20140306
  Receipt Date: 20140306
  Transmission Date: 20141002
  Serious: Yes (Other)
  Sender: FDA-Public Use
  Company Number: US-ABBVIE-13P-163-1140678-00

PATIENT
  Sex: Female

DRUGS (1)
  1. HUMIRA [Suspect]
     Indication: CROHN^S DISEASE

REACTIONS (10)
  - Cerebrovascular accident [Unknown]
  - Drug intolerance [Unknown]
  - Polyarthritis [Unknown]
  - Crohn^s disease [Unknown]
  - Fibromyalgia [Unknown]
  - Bladder disorder [Unknown]
  - Immune thrombocytopenic purpura [Unknown]
  - Impaired work ability [Unknown]
  - Disability [Unknown]
  - Anaemia [Unknown]
